FAERS Safety Report 14377401 (Version 4)
Quarter: 2018Q3

REPORT INFORMATION
  Report Type: Spontaneous
  Country: US (occurrence: US)
  Receive Date: 20180111
  Receipt Date: 20180712
  Transmission Date: 20181010
  Serious: Yes (Hospitalization)
  Sender: FDA-Public Use
  Company Number: US-PFIZER INC-2018009394

PATIENT
  Age: 71 Year
  Sex: Female
  Weight: 102.6 kg

DRUGS (9)
  1. TIKOSYN [Suspect]
     Active Substance: DOFETILIDE
     Dosage: 0.25 MG, TWICE DAILY IN MORNING AND AT BEDTIME
     Route: 048
     Dates: start: 20171220
  2. WARFARIN [Concomitant]
     Active Substance: WARFARIN
     Dosage: 7.5 MG, DAILY (ON TUESDAY, WEDNESDAY AND FRIDAY)
     Route: 048
     Dates: start: 2016
  3. WARFARIN [Concomitant]
     Active Substance: WARFARIN
     Dosage: 5 MG, DAILY (EXCEPT FOR MONDAY AND FRIDAY)
  4. WARFARIN [Concomitant]
     Active Substance: WARFARIN
     Dosage: 7 MG A DAY (EVERY MONDAY AND FRIDAY)
  5. TIKOSYN [Suspect]
     Active Substance: DOFETILIDE
     Dosage: 0.25 MG, TWICE DAILY IN MORNING AND AT BEDTIME
     Route: 048
     Dates: end: 20171218
  6. DILTIAZEM HCL ER [Concomitant]
     Active Substance: DILTIAZEM HYDROCHLORIDE
     Indication: ATRIAL FIBRILLATION
     Dosage: 240 MG, ONCE DAILY IN THE MORNING
     Route: 048
     Dates: start: 2016
  7. WARFARIN [Concomitant]
     Active Substance: WARFARIN
     Indication: ATRIAL FIBRILLATION
     Dosage: 5 MG, DAILY (ON MONDAY, THURSDAY AND SUNDAY)
     Route: 048
     Dates: start: 2016
  8. TIKOSYN [Suspect]
     Active Substance: DOFETILIDE
     Indication: ATRIAL FIBRILLATION
     Dosage: 250 MCG, TWICE A DAY
     Route: 048
     Dates: start: 201610
  9. ATENOLOL. [Concomitant]
     Active Substance: ATENOLOL
     Indication: HYPERTENSION
     Dosage: 100 MG, DAILY
     Route: 048
     Dates: start: 2002

REACTIONS (2)
  - Irritable bowel syndrome [Recovered/Resolved]
  - Insomnia [Unknown]
